FAERS Safety Report 8052435-6 (Version None)
Quarter: 2012Q1

REPORT INFORMATION
  Report Type: 
  Country: None (occurrence: None)
  Receive Date: 20120118
  Receipt Date: 20120113
  Transmission Date: 20120608
  Serious: Yes (Death)
  Sender: FDA-Public Use
  Company Number: US-PFIZER INC-2012010488

PATIENT
  Sex: Female

DRUGS (11)
  1. SUTENT [Suspect]
     Dosage: 12.5 MG, UNK
     Dates: start: 20110701, end: 20110801
  2. AFINITOR [Suspect]
     Dosage: 10 MG, 1X/DAY
     Route: 048
     Dates: start: 20111101
  3. RITALIN [Concomitant]
     Dosage: 10 MG, UNK
  4. FENTANYL [Concomitant]
     Dosage: 75 MCG/HR
  5. MILK OF MAGNESIA TAB [Concomitant]
     Dosage: UNK
  6. PREVACID [Concomitant]
     Dosage: 15 MG, UNK
  7. SENNA [Concomitant]
     Dosage: 15 MG, UNK
  8. OXYCODONE [Concomitant]
     Dosage: 20 MG, UNK
  9. GRANISETRON [Concomitant]
     Dosage: 3.1 MG, UNK
  10. ATIVAN [Concomitant]
     Dosage: 1 MG, UNK
  11. CALCIUM [Concomitant]
     Dosage: UNK, 500

REACTIONS (1)
  - DEATH [None]
